FAERS Safety Report 9752001 (Version 1)
Quarter: 2013Q4

REPORT INFORMATION
  Report Type: Spontaneous
  Country: US (occurrence: None)
  Receive Date: 20131211
  Receipt Date: 20131211
  Transmission Date: 20140711
  Serious: No
  Sender: FDA-Public Use
  Company Number: None

PATIENT
  Age: 10 Year
  Sex: Male
  Weight: 31.3 kg

DRUGS (4)
  1. ABILIFY [Suspect]
     Dosage: 2.5 MG ( 1/2 TABLET) BID ORAL
     Route: 048
     Dates: start: 20131204, end: 20131206
  2. LUVOX [Concomitant]
  3. INTUNIV [Concomitant]
  4. TRILEPTAL [Concomitant]

REACTIONS (4)
  - Muscle twitching [None]
  - Musculoskeletal stiffness [None]
  - Pain [None]
  - Muscle spasms [None]
